FAERS Safety Report 23183163 (Version 1)
Quarter: 2023Q4

REPORT INFORMATION
  Report Type: Spontaneous
  Country: US (occurrence: US)
  Receive Date: 20231114
  Receipt Date: 20231114
  Transmission Date: 20240110
  Serious: No
  Sender: FDA-Public Use
  Company Number: US-SA-SAC20231107001258

PATIENT
  Age: 16 Year
  Sex: Female

DRUGS (1)
  1. REZUROCK [Suspect]
     Active Substance: BELUMOSUDIL
     Indication: Chronic graft versus host disease
     Dosage: 200 MG, QD
     Route: 048
     Dates: start: 20230609

REACTIONS (3)
  - Nasopharyngitis [Unknown]
  - Upper-airway cough syndrome [Unknown]
  - Nasal congestion [Unknown]

NARRATIVE: CASE EVENT DATE: 20230101
